FAERS Safety Report 24578884 (Version 2)
Quarter: 2024Q4

REPORT INFORMATION
  Report Type: Spontaneous
  Country: US (occurrence: US)
  Receive Date: 20241105
  Receipt Date: 20241210
  Transmission Date: 20250115
  Serious: No
  Sender: ELI LILLY AND COMPANY
  Company Number: US-ELI_LILLY_AND_COMPANY-US202410019702

PATIENT
  Age: 80 Year
  Sex: Male
  Weight: 63.492 kg

DRUGS (3)
  1. KISUNLA [Suspect]
     Active Substance: DONANEMAB-AZBT
     Indication: Dementia Alzheimer^s type
     Dosage: 700 MG, OTHER (EVERY 4 WEEKS)
     Route: 042
     Dates: start: 20240925
  2. KISUNLA [Suspect]
     Active Substance: DONANEMAB-AZBT
     Dosage: 700 MG, OTHER (EVERY 4 WEEKS)
     Route: 042
     Dates: start: 20241023, end: 20241023
  3. KISUNLA [Suspect]
     Active Substance: DONANEMAB-AZBT
     Dosage: 700 MG, OTHER (EVERY 4 WEEKS)
     Route: 042
     Dates: start: 20241120

REACTIONS (8)
  - Flushing [Recovered/Resolved]
  - Ocular hyperaemia [Recovered/Resolved]
  - Blood pressure systolic decreased [Recovered/Resolved]
  - Eating disorder [Recovering/Resolving]
  - Dehydration [Recovered/Resolved]
  - Abnormal behaviour [Recovered/Resolved]
  - Erythema [Recovered/Resolved]
  - Nausea [Recovered/Resolved]

NARRATIVE: CASE EVENT DATE: 20241023
